FAERS Safety Report 9050526 (Version 1)
Quarter: 2013Q1

REPORT INFORMATION
  Report Type: Spontaneous
  Country: GB (occurrence: GB)
  Receive Date: 20130205
  Receipt Date: 20130205
  Transmission Date: 20140127
  Serious: Yes (Other)
  Sender: FDA-Public Use
  Company Number: PHHY2013GB009145

PATIENT
  Age: 42 Year
  Sex: Male

DRUGS (1)
  1. PAROXETINE [Suspect]

REACTIONS (2)
  - Infertility male [Unknown]
  - Ejaculation failure [Unknown]
